FAERS Safety Report 12111470 (Version 5)
Quarter: 2016Q2

REPORT INFORMATION
  Report Type: Spontaneous
  Country: US (occurrence: US)
  Receive Date: 20160224
  Receipt Date: 20160531
  Transmission Date: 20160815
  Serious: Yes (Disabling, Other)
  Sender: FDA-Public Use
  Company Number: US-REGENERON PHARMACEUTICALS, INC.-2016-12535

PATIENT

DRUGS (3)
  1. EYLEA [Suspect]
     Active Substance: AFLIBERCEPT
     Dosage: 0.05 ML MILLILITRE(S), SINGLE, LAST DOSE PRIOR TO ONSET
     Route: 031
     Dates: start: 20160106, end: 20160106
  2. EYLEA [Suspect]
     Active Substance: AFLIBERCEPT
     Dosage: 0.05 UNK, SINGLE
     Route: 031
     Dates: start: 20160211, end: 20160211
  3. EYLEA [Suspect]
     Active Substance: AFLIBERCEPT
     Indication: AGE-RELATED MACULAR DEGENERATION
     Dosage: 0.05 ML MILLILITRE(S), WEEKLY, LEFT EYE
     Route: 031
     Dates: start: 20141009

REACTIONS (3)
  - Endophthalmitis [Recovered/Resolved]
  - Staphylococcal infection [Recovered/Resolved]
  - Blindness transient [Not Recovered/Not Resolved]

NARRATIVE: CASE EVENT DATE: 20160211
